FAERS Safety Report 9668856 (Version 1)
Quarter: 2013Q4

REPORT INFORMATION
  Report Type: Report from Study
  Country: MX (occurrence: MX)
  Receive Date: 20131105
  Receipt Date: 20131105
  Transmission Date: 20140711
  Serious: Yes (Other)
  Sender: FDA-Public Use
  Company Number: PHHY2013MX124683

PATIENT
  Age: 58 Year
  Sex: Female

DRUGS (3)
  1. ACLASTA [Suspect]
     Indication: OSTEOPOROSIS
     Dosage: 5 MG/100ML, ANNUALLY
     Route: 042
     Dates: start: 201102
  2. ACLASTA [Suspect]
     Dosage: 5 MG/100ML, ANNUALY
     Route: 042
     Dates: start: 201202
  3. ACLASTA [Suspect]
     Dosage: 5 MG/100ML, ANNUALLY
     Route: 042
     Dates: start: 20130228

REACTIONS (3)
  - Spinal cord injury lumbar [Unknown]
  - Back pain [Not Recovered/Not Resolved]
  - Feeling abnormal [Not Recovered/Not Resolved]
